FAERS Safety Report 7808401-6 (Version None)
Quarter: 2011Q4

REPORT INFORMATION
  Report Type: 
  Country: None (occurrence: None)
  Receive Date: 20111011
  Receipt Date: 20111011
  Transmission Date: 20120403
  Serious: Yes (Other)
  Sender: FDA-Public Use
  Company Number: None

PATIENT
  Age: 34 Year
  Sex: Male
  Weight: 90.2658 kg

DRUGS (6)
  1. LINEZOLID [Suspect]
     Indication: STAPHYLOCOCCAL ABSCESS
     Dosage: 600 MG BID PO
     Route: 048
     Dates: start: 20110926, end: 20110928
  2. LINEZOLID [Suspect]
     Indication: RECTAL ABSCESS
     Dosage: 600 MG BID PO
     Route: 048
     Dates: start: 20110926, end: 20110928
  3. RANITIDINE [Concomitant]
  4. CLOZAPINE [Concomitant]
  5. ARIPIPRAZOLE [Concomitant]
  6. CLONAZEPAM [Concomitant]

REACTIONS (4)
  - CONFUSIONAL STATE [None]
  - DYSARTHRIA [None]
  - MEMORY IMPAIRMENT [None]
  - FALL [None]
